FAERS Safety Report 5368635-X (Version None)
Quarter: 2007Q2

REPORT INFORMATION
  Report Type: 
  Country: None (occurrence: None)
  Receive Date: 20070621
  Receipt Date: 20070621
  Transmission Date: 20071010
  Serious: Yes (Hospitalization)
  Sender: FDA-Public Use
  Company Number: None

PATIENT
  Age: 13 Year
  Sex: Female
  Weight: 51.1 kg

DRUGS (1)
  1. DIVALPROEX SODIUM [Suspect]
     Indication: DEPRESSION
     Dosage: 500MG TID PO PRIOR TO HOSPITAL ADMISSI
     Route: 048

REACTIONS (6)
  - DRUG TOXICITY [None]
  - LOSS OF CONSCIOUSNESS [None]
  - MENTAL STATUS CHANGES [None]
  - RASH [None]
  - RESPIRATORY DEPRESSION [None]
  - TACHYCARDIA [None]
